FAERS Safety Report 18963633 (Version 1)
Quarter: 2021Q1

REPORT INFORMATION
  Report Type: Spontaneous
  Country: US (occurrence: US)
  Receive Date: 20210303
  Receipt Date: 20210303
  Transmission Date: 20210420
  Serious: No
  Sender: FDA-Public Use
  Company Number: US-ELI_LILLY_AND_COMPANY-US202103001482

PATIENT
  Age: 78 Year
  Sex: Female

DRUGS (4)
  1. TRULICITY [Suspect]
     Active Substance: DULAGLUTIDE
     Indication: DIABETES MELLITUS
     Dosage: 1.5 MG, UNKNOWN
     Route: 058
     Dates: start: 20200429
  2. BONIVA [Suspect]
     Active Substance: IBANDRONATE SODIUM
     Indication: BONE DENSITY DECREASED
     Dosage: 150 MG, MONTHLY (1/M)
     Route: 065
     Dates: start: 20200813
  3. TRULICITY [Suspect]
     Active Substance: DULAGLUTIDE
     Dosage: 1.5 MG, UNKNOWN
     Route: 058
  4. TRULICITY [Suspect]
     Active Substance: DULAGLUTIDE
     Dosage: 1.5 MG, UNKNOWN
     Route: 058

REACTIONS (4)
  - Hair colour changes [Not Recovered/Not Resolved]
  - Alopecia [Not Recovered/Not Resolved]
  - Hair growth abnormal [Not Recovered/Not Resolved]
  - Bone density decreased [Recovering/Resolving]

NARRATIVE: CASE EVENT DATE: 202012
